FAERS Safety Report 22534815 (Version 1)
Quarter: 2023Q2

REPORT INFORMATION
  Report Type: Spontaneous
  Country: SE (occurrence: None)
  Receive Date: 20230608
  Receipt Date: 20230608
  Transmission Date: 20230722
  Serious: Yes (Hospitalization, Disabling)
  Sender: FDA-Public Use
  Company Number: 2023A126279

PATIENT
  Age: 76 Year
  Sex: Male

DRUGS (1)
  1. FASENRA [Suspect]
     Active Substance: BENRALIZUMAB
     Indication: Asthma
     Dosage: 1 SYRINGE/MONTH THE FIRST 3 TIMES, THEN EACH 8TH WEEK DOSE: FIRST DOSE
     Route: 058
     Dates: start: 20230414, end: 20230508

REACTIONS (2)
  - Cerebrovascular accident [Not Recovered/Not Resolved]
  - Erythema [Recovering/Resolving]

NARRATIVE: CASE EVENT DATE: 20230101
